FAERS Safety Report 5121927-1 (Version None)
Quarter: 2006Q4

REPORT INFORMATION
  Report Type: 
  Country: None (occurrence: None)
  Receive Date: 20061006
  Receipt Date: 20060928
  Transmission Date: 20070319
  Serious: Yes (Other)
  Sender: FDA-Public Use
  Company Number: 2006UW19036

PATIENT
  Age: 66 Year
  Sex: Female
  Weight: 74 kg

DRUGS (3)
  1. CRESTOR [Suspect]
  2. ENALAPRIL MALEATE [Concomitant]
     Indication: HYPERTENSION
  3. CARBOLITHIUM [Concomitant]

REACTIONS (1)
  - BREAST CANCER FEMALE [None]
